FAERS Safety Report 5142178-0 (Version None)
Quarter: 2006Q4

REPORT INFORMATION
  Report Type: 
  Country: None (occurrence: None)
  Receive Date: 20061102
  Receipt Date: 20060602
  Transmission Date: 20070319
  Serious: Yes (Other)
  Sender: FDA-Public Use
  Company Number: BR-BRACCO-BRO-010185

PATIENT
  Age: 70 Year
  Sex: Male

DRUGS (1)
  1. IOPAMIRON [Suspect]
     Route: 042
     Dates: start: 20060321, end: 20060321

REACTIONS (6)
  - CYANOSIS [None]
  - DYSPHONIA [None]
  - DYSPNOEA [None]
  - ERYTHEMA [None]
  - LOSS OF CONSCIOUSNESS [None]
  - MALAISE [None]
